FAERS Safety Report 8161608 (Version 8)
Quarter: 2013Q2

REPORT INFORMATION
  Report Type: Report from Study
  Country: JP (occurrence: JP)
  Receive Date: 20110929
  Receipt Date: 20130521
  Transmission Date: 20140414
  Serious: Yes (Other)
  Sender: FDA-Public Use
  Company Number: JP-SHIRE-CQT4-2011-00007

PATIENT
  Age: 59 Year
  Sex: Male
  Weight: 61.9 kg

DRUGS (10)
  1. 422 (ANAGRELIDE) [Suspect]
     Indication: ESSENTIAL THROMBOCYTHAEMIA
     Dosage: 0.5 MG, 2X/DAY:BID
     Route: 048
     Dates: start: 20110831
  2. 422 (ANAGRELIDE) [Suspect]
     Dosage: 1.0 MG, DAILY
     Route: 048
     Dates: start: 20110426, end: 20110523
  3. 422 (ANAGRELIDE) [Suspect]
     Dosage: 1.5 MG, DAILY
     Route: 048
     Dates: start: 20110524, end: 20110830
  4. ZYLORIC [Concomitant]
     Indication: HYPERURICAEMIA
     Dosage: UNK
     Route: 065
     Dates: start: 20080909
  5. BUFFERIN COMBINATION TABLET A81 [Concomitant]
     Indication: ESSENTIAL THROMBOCYTHAEMIA
     Dosage: 81 MG, UNKNOWN
     Route: 065
     Dates: start: 20081021, end: 20110823
  6. DERMOVATE OINTMENT [Concomitant]
     Indication: RASH
     Dosage: UNK UNK, UNKNOWN
     Route: 065
     Dates: start: 20101130
  7. 10% SALICYLIC ACID OINTMENT TOHO [Concomitant]
     Indication: RASH
     Dosage: UNK UNK, UNKNOWN
     Dates: start: 20101130
  8. PROCAINE HYDROCHLORIDE [Concomitant]
     Indication: ASPIRATION BONE MARROW
     Dosage: UNK UNK, UNKNOWN
     Dates: start: 20110831, end: 20110831
  9. IOPAMIRON [Concomitant]
     Indication: COMPUTERISED TOMOGRAM
     Dosage: UNK UNK, UNKNOWN
     Dates: start: 20110831, end: 20110831
  10. ISOTONIC SODIUM CHLORIDE SOLUTION SYRINGE SN [Concomitant]
     Indication: COMPUTERISED TOMOGRAM
     Dosage: UNK UNK, UNKNOWN
     Dates: start: 20110831, end: 20110831

REACTIONS (5)
  - Cytogenetic abnormality [Not Recovered/Not Resolved]
  - Anaemia [None]
  - Fatigue [None]
  - Diarrhoea [None]
  - Platelet count decreased [None]
